FAERS Safety Report 12448352 (Version 1)
Quarter: 2016Q2

REPORT INFORMATION
  Report Type: Spontaneous
  Country: ES (occurrence: ES)
  Receive Date: 20160608
  Receipt Date: 20160608
  Transmission Date: 20160815
  Serious: No
  Sender: FDA-Public Use
  Company Number: ES-JNJFOC-20160601456

PATIENT
  Age: 70 Year
  Sex: Female

DRUGS (1)
  1. DUROGESIC [Suspect]
     Active Substance: FENTANYL
     Indication: PAIN
     Dosage: 50 (UNITS UNSPECIFIED)
     Route: 062

REACTIONS (1)
  - Wrong technique in product usage process [Unknown]
